FAERS Safety Report 5333698-4 (Version None)
Quarter: 2007Q2

REPORT INFORMATION
  Report Type: 
  Country: None (occurrence: None)
  Receive Date: 20070524
  Receipt Date: 20070518
  Transmission Date: 20071010
  Serious: Yes (Life-Threatening, Hospitalization)
  Sender: FDA-Public Use
  Company Number: B0466353A

PATIENT
  Age: 75 Year
  Sex: Male
  Weight: 53 kg

DRUGS (4)
  1. ALKERAN [Suspect]
     Indication: MULTIPLE MYELOMA
     Route: 048
     Dates: start: 20070305, end: 20070330
  2. PREDONINE [Suspect]
     Indication: MULTIPLE MYELOMA
     Route: 048
     Dates: start: 20070305, end: 20070330
  3. ONEALFA [Concomitant]
     Route: 048
  4. ALLOPURINOL [Concomitant]
     Route: 048

REACTIONS (5)
  - ANAEMIA [None]
  - CYSTITIS HAEMORRHAGIC [None]
  - GASTROINTESTINAL HAEMORRHAGE [None]
  - PYREXIA [None]
  - URINARY BLADDER HAEMORRHAGE [None]
